FAERS Safety Report 8914315 (Version 1)
Quarter: 2012Q4

REPORT INFORMATION
  Report Type: Report from Study
  Country: CA (occurrence: CA)
  Receive Date: 20121119
  Receipt Date: 20121119
  Transmission Date: 20130627
  Serious: Yes (Other)
  Sender: FDA-Public Use
  Company Number: CA-JNJFOC-20121105683

PATIENT
  Sex: Male
  Weight: 85 kg

DRUGS (8)
  1. REMICADE [Suspect]
     Indication: UVEITIS
     Route: 042
     Dates: start: 20080116
  2. XALATAN [Concomitant]
     Route: 065
  3. AZOPT [Concomitant]
     Route: 065
  4. COMBIGAN [Concomitant]
     Route: 065
  5. EFFEXOR [Concomitant]
     Route: 065
  6. METHOTREXATE [Concomitant]
     Dosage: 300 (unspecified)
  7. CALTRATE [Concomitant]
     Dosage: 600 (unspecified)
  8. FOLIC ACID [Concomitant]
     Route: 065

REACTIONS (1)
  - Muscle spasms [Unknown]
